FAERS Safety Report 6096458-5 (Version None)
Quarter: 2009Q1

REPORT INFORMATION
  Report Type: 
  Country: None (occurrence: None)
  Receive Date: 20090227
  Receipt Date: 20090112
  Transmission Date: 20090719
  Serious: No
  Sender: FDA-Public Use
  Company Number: A0762058A

PATIENT
  Age: 26 Year
  Sex: Female

DRUGS (2)
  1. LAMICTAL [Suspect]
     Indication: BIPOLAR DISORDER
     Dosage: 75MG TWICE PER DAY
     Route: 048
     Dates: start: 20080601
  2. ABILIFY [Concomitant]
     Dosage: 5MG PER DAY
     Route: 048
     Dates: start: 20081202

REACTIONS (2)
  - BALANCE DISORDER [None]
  - DIZZINESS [None]
